FAERS Safety Report 9040087 (Version 1)
Quarter: 2013Q1

REPORT INFORMATION
  Report Type: Report from Study
  Country: US (occurrence: US)
  Receive Date: 20130130
  Receipt Date: 20130130
  Transmission Date: 20140127
  Serious: No
  Sender: FDA-Public Use
  Company Number: US-ABBOTT-12P-163-0953270-00

PATIENT
  Age: 35 Year
  Sex: Female

DRUGS (1)
  1. HUMIRA 40 MG/0.8 ML PEN [Suspect]
     Indication: CROHN^S DISEASE
     Dosage: LOADING DOSE
     Route: 058
     Dates: start: 20120630

REACTIONS (4)
  - Flushing [Recovered/Resolved]
  - Injection site haemorrhage [Recovered/Resolved]
  - Injection site pain [Recovered/Resolved]
  - Injection site pain [Recovered/Resolved]
